FAERS Safety Report 5547431-4 (Version None)
Quarter: 2007Q4

REPORT INFORMATION
  Report Type: 
  Country: None (occurrence: None)
  Receive Date: 20071128
  Receipt Date: 20070606
  Transmission Date: 20080405
  Serious: Yes (Other)
  Sender: FDA-Public Use
  Company Number: 2007047519

PATIENT
  Age: 41 Year
  Sex: Male
  Weight: 97.72 kg

DRUGS (2)
  1. LIPITOR [Suspect]
     Indication: BLOOD CHOLESTEROL INCREASED
     Dosage: 40 MG
     Dates: start: 20060601
  2. VALSARTAN [Concomitant]

REACTIONS (1)
  - AMNESIA [None]
